FAERS Safety Report 18050988 (Version 5)
Quarter: 2021Q2

REPORT INFORMATION
  Report Type: Spontaneous
  Country: SK (occurrence: SK)
  Receive Date: 20200721
  Receipt Date: 20210630
  Transmission Date: 20210717
  Serious: Yes (Death, Hospitalization, Other)
  Sender: FDA-Public Use
  Company Number: NVSC2020SK204793

PATIENT
  Age: 41 Year
  Sex: Male

DRUGS (3)
  1. CYCLOSPORINE. [Interacting]
     Active Substance: CYCLOSPORINE
     Indication: CHRONIC GRAFT VERSUS HOST DISEASE
     Dosage: UNK
     Route: 065
  2. MYCOPHENOLATE MOFETIL. [Suspect]
     Active Substance: MYCOPHENOLATE MOFETIL
     Indication: CHRONIC GRAFT VERSUS HOST DISEASE
     Dosage: UNK
     Route: 065
  3. METHYLPREDNISOLONE. [Interacting]
     Active Substance: METHYLPREDNISOLONE
     Indication: CHRONIC GRAFT VERSUS HOST DISEASE
     Dosage: UNK
     Route: 065

REACTIONS (9)
  - Psychotic disorder [Fatal]
  - Respiratory tract infection [Fatal]
  - Interstitial lung disease [Fatal]
  - Blood pressure decreased [Fatal]
  - Bronchopulmonary aspergillosis [Fatal]
  - Pulmonary fibrosis [Fatal]
  - Myopathy [Fatal]
  - Drug interaction [Unknown]
  - Hypoxia [Fatal]

NARRATIVE: CASE EVENT DATE: 2017
